FAERS Safety Report 10235278 (Version 1)
Quarter: 2014Q1

REPORT INFORMATION
  Report Type: Spontaneous
  Country: US (occurrence: None)
  Receive Date: 20140306
  Receipt Date: 20140306
  Transmission Date: 20141002
  Serious: Yes (Disabling, Other)
  Sender: FDA-Public Use
  Company Number: 163-21880-13053873

PATIENT
  Age: 83 Year
  Sex: Female

DRUGS (1)
  1. REVLIMID [Suspect]
     Indication: 5Q MINUS SYNDROME
     Dosage: 28 IN 28 D
     Route: 048
     Dates: start: 20130327, end: 20130424

REACTIONS (3)
  - Acute myeloid leukaemia [None]
  - Myelodysplastic syndrome transformation [None]
  - Drug ineffective [None]
